FAERS Safety Report 9935006 (Version 1)
Quarter: 2014Q1

REPORT INFORMATION
  Report Type: Report from Study
  Country: US (occurrence: US)
  Receive Date: 20140228
  Receipt Date: 20140228
  Transmission Date: 20141002
  Serious: Yes (Disabling, Other)
  Sender: FDA-Public Use
  Company Number: PHEH2014US004014

PATIENT
  Sex: Female

DRUGS (1)
  1. NEORAL [Suspect]
     Dosage: UNK UKN, UNK

REACTIONS (3)
  - Fall [Unknown]
  - Upper limb fracture [Unknown]
  - Hip fracture [Unknown]
